FAERS Safety Report 10354470 (Version 1)
Quarter: 2014Q3

REPORT INFORMATION
  Report Type: Spontaneous
  Country: US (occurrence: None)
  Receive Date: 20140729
  Receipt Date: 20140729
  Transmission Date: 20150326
  Serious: Yes (Hospitalization)
  Sender: FDA-Public Use
  Company Number: None

PATIENT
  Age: 59 Year
  Sex: Female
  Weight: 110.22 kg

DRUGS (13)
  1. ATORVASTATIN [Concomitant]
     Active Substance: ATORVASTATIN
  2. LEVOTHYROXINE [Concomitant]
     Active Substance: LEVOTHYROXINE
  3. CINNAMON. [Concomitant]
     Active Substance: CINNAMON
  4. FLUOXETINE [Concomitant]
     Active Substance: FLUOXETINE\FLUOXETINE HYDROCHLORIDE
  5. NOVOLOG [Suspect]
     Active Substance: INSULIN ASPART
     Dosage: 3 TIMES FOR NOVOLOG ?5 UNITS OF NOVOLOG
  6. JANUVIA [Concomitant]
     Active Substance: SITAGLIPTIN PHOSPHATE
  7. BLOOD GLUCOSE METER [Concomitant]
  8. ASPIRIN. [Concomitant]
     Active Substance: ASPIRIN
  9. CENTRUM [Concomitant]
     Active Substance: VITAMINS
  10. LANTUS SOLOSTAR [Suspect]
     Active Substance: INSULIN GLARGINE
     Indication: DIABETES MELLITUS
     Dates: start: 20140509
  11. LISINOPRIL. [Concomitant]
     Active Substance: LISINOPRIL
  12. RISPERIDONE. [Concomitant]
     Active Substance: RISPERIDONE
  13. ZINC [Concomitant]
     Active Substance: ZINC\ZINC CHLORIDE

REACTIONS (2)
  - Dyspnoea [None]
  - Chest pain [None]
